FAERS Safety Report 4959103-5 (Version None)
Quarter: 2006Q1

REPORT INFORMATION
  Report Type: 
  Country: None (occurrence: None)
  Receive Date: 20060331
  Receipt Date: 20060328
  Transmission Date: 20060701
  Serious: Yes (Other)
  Sender: FDA-Public Use
  Company Number: PHBS2006RO04590

PATIENT
  Age: 60 Year
  Sex: Male
  Weight: 68 kg

DRUGS (6)
  1. COMTAN [Suspect]
     Indication: PARKINSON'S DISEASE
     Dosage: 200 MG, TID
     Route: 048
     Dates: start: 20040704, end: 20040713
  2. MADOPAR [Concomitant]
     Dosage: 250 MG/DAY
  3. MADOPAR HBS [Concomitant]
     Dosage: 125 MG/DAY
  4. MIRAPEXIN [Concomitant]
  5. PIRACETAM [Concomitant]
  6. CLEXANE [Concomitant]

REACTIONS (3)
  - GLOSSODYNIA [None]
  - LIP PAIN [None]
  - MUCOSAL DISCOLOURATION [None]
